FAERS Safety Report 23327206 (Version 2)
Quarter: 2024Q1

REPORT INFORMATION
  Report Type: Spontaneous
  Country: FR (occurrence: FR)
  Receive Date: 20231221
  Receipt Date: 20240118
  Transmission Date: 20240409
  Serious: Yes (Death, Other)
  Sender: FDA-Public Use
  Company Number: None

PATIENT
  Age: 88 Year
  Sex: Female

DRUGS (3)
  1. IOPAMIRON [Suspect]
     Active Substance: IOPAMIDOL
     Indication: Joint injection
     Dosage: UNKNOWN DOSAGE
     Route: 042
     Dates: start: 20230607, end: 20230607
  2. XYLOCAINE WITH EPINEPHRINE [Suspect]
     Active Substance: EPINEPHRINE BITARTRATE\LIDOCAINE HYDROCHLORIDE
     Indication: Joint injection
     Dosage: UNKNOWN DOSAGE
     Dates: start: 20230607, end: 20230607
  3. PREDNISOLONE ACETATE [Suspect]
     Active Substance: PREDNISOLONE ACETATE
     Indication: Joint injection
     Dosage: UNKNOWN DOSAGE
     Route: 014
     Dates: start: 20230607, end: 20230607

REACTIONS (1)
  - Cardio-respiratory arrest [Fatal]

NARRATIVE: CASE EVENT DATE: 20230607
